FAERS Safety Report 6170909-X (Version None)
Quarter: 2009Q2

REPORT INFORMATION
  Report Type: 
  Country: None (occurrence: None)
  Receive Date: 20090427
  Receipt Date: 20090420
  Transmission Date: 20091009
  Serious: Yes (Other)
  Sender: FDA-Public Use
  Company Number: 2009SP008528

PATIENT
  Age: 48 Year
  Sex: Male

DRUGS (4)
  1. TEMODAL [Suspect]
     Indication: GLIOBLASTOMA
     Dosage: PO
     Route: 048
     Dates: start: 20090404
  2. ONDANSETRON HCL [Concomitant]
  3. KEPPRA [Concomitant]
  4. PRAVASTATIN [Concomitant]

REACTIONS (1)
  - DRUG HYPERSENSITIVITY [None]
